FAERS Safety Report 10575477 (Version 1)
Quarter: 2014Q4

REPORT INFORMATION
  Report Type: Spontaneous
  Country: GB (occurrence: None)
  Receive Date: 20141107
  Receipt Date: 20141107
  Transmission Date: 20150529
  Serious: Yes (Congenital Anomaly)
  Sender: FDA-Public Use
  Company Number: IMP_08036_2014

PATIENT
  Age: 24 Month

DRUGS (1)
  1. DIVALPROEX SODIUM. [Suspect]
     Active Substance: DIVALPROEX SODIUM
     Indication: MATERNAL EXPOSURE TIMING UNSPECIFIED

REACTIONS (8)
  - Bicuspid aortic valve [None]
  - Foetal anticonvulsant syndrome [None]
  - Maternal drugs affecting foetus [None]
  - Cytogenetic abnormality [None]
  - Dysmorphism [None]
  - Developmental delay [None]
  - Hypospadias [None]
  - Polydactyly [None]
